FAERS Safety Report 16049832 (Version 3)
Quarter: 2019Q4

REPORT INFORMATION
  Report Type: Spontaneous
  Country: US (occurrence: US)
  Receive Date: 20190307
  Receipt Date: 20191029
  Transmission Date: 20200122
  Serious: Yes (Other)
  Sender: FDA-Public Use
  Company Number: US-ASTRAZENECA-2018SF65230

PATIENT
  Sex: Male

DRUGS (53)
  1. AMOXICILLINE [Concomitant]
     Active Substance: AMOXICILLIN
  2. DOCUSATE [Concomitant]
     Active Substance: DOCUSATE
  3. SENNA [Concomitant]
     Active Substance: SENNA LEAF\SENNOSIDES\SENNOSIDES A AND B
  4. OXYCODONE [Concomitant]
     Active Substance: OXYCODONE
  5. LEXAPRO [Concomitant]
     Active Substance: ESCITALOPRAM OXALATE
  6. ZANTAC [Concomitant]
     Active Substance: RANITIDINE HYDROCHLORIDE
  7. VESICARE [Concomitant]
     Active Substance: SOLIFENACIN SUCCINATE
  8. BUDESONIDE. [Concomitant]
     Active Substance: BUDESONIDE
  9. LOVASTATIN. [Concomitant]
     Active Substance: LOVASTATIN
  10. CIPROFLOXACIN. [Concomitant]
     Active Substance: CIPROFLOXACIN
  11. CLINDAMYCIN. [Concomitant]
     Active Substance: CLINDAMYCIN
  12. CHOLECALCIFEROL [Concomitant]
     Active Substance: CHOLECALCIFEROL
  13. DIGOXIN. [Concomitant]
     Active Substance: DIGOXIN
  14. PRILOSEC [Suspect]
     Active Substance: OMEPRAZOLE MAGNESIUM
     Dosage: VARIOUS DATES AND YEARS
     Route: 048
  15. DOCUSATE [Concomitant]
     Active Substance: DOCUSATE
  16. AZITHROMYCIN ANHYDROUS. [Concomitant]
     Active Substance: AZITHROMYCIN ANHYDROUS
  17. ONDANSETRON [Concomitant]
     Active Substance: ONDANSETRON
  18. SODIUM BIPHOSPHATE [Concomitant]
  19. ZOLPIDEM [Concomitant]
     Active Substance: ZOLPIDEM TARTRATE
  20. ALENDRONATE SODIUM. [Concomitant]
     Active Substance: ALENDRONATE SODIUM
  21. TIZANIDINE. [Concomitant]
     Active Substance: TIZANIDINE
  22. HYDROCODONE BITARTRATE AND ACETAMINOPHEN [Concomitant]
     Active Substance: ACETAMINOPHEN\HYDROCODONE BITARTRATE
  23. METHADONE [Concomitant]
     Active Substance: METHADONE HYDROCHLORIDE
  24. FLUTICASONE. [Concomitant]
     Active Substance: FLUTICASONE
  25. VENLAFAXINE [Concomitant]
     Active Substance: VENLAFAXINE HYDROCHLORIDE
  26. CITALOPRAM [Concomitant]
     Active Substance: CITALOPRAM HYDROBROMIDE
  27. WARFARIN [Concomitant]
     Active Substance: WARFARIN
  28. MORPHIN [Concomitant]
     Active Substance: MORPHINE
  29. LIDOCAINE. [Concomitant]
     Active Substance: LIDOCAINE
  30. IBUPROFEN. [Concomitant]
     Active Substance: IBUPROFEN
  31. FLUNISOLIDE. [Concomitant]
     Active Substance: FLUNISOLIDE
  32. NAPROXEN. [Concomitant]
     Active Substance: NAPROXEN
  33. CROMOLYN [Concomitant]
     Active Substance: CROMOLYN
  34. CLONIDINE. [Concomitant]
     Active Substance: CLONIDINE
  35. METOPROLOL. [Concomitant]
     Active Substance: METOPROLOL
  36. FLUTICASONE. [Concomitant]
     Active Substance: FLUTICASONE
  37. LEVOTHYROXINE. [Concomitant]
     Active Substance: LEVOTHYROXINE
  38. PRILOSEC [Suspect]
     Active Substance: OMEPRAZOLE MAGNESIUM
     Dosage: GENERIC
     Route: 065
     Dates: start: 20151020
  39. FUROSEMIDE. [Concomitant]
     Active Substance: FUROSEMIDE
  40. ALBUTEROL. [Concomitant]
     Active Substance: ALBUTEROL
  41. LISINOPRIL. [Concomitant]
     Active Substance: LISINOPRIL
  42. BISACODYL. [Concomitant]
     Active Substance: BISACODYL
  43. LISINOPRIL. [Concomitant]
     Active Substance: LISINOPRIL
  44. PRILOSEC [Suspect]
     Active Substance: OMEPRAZOLE MAGNESIUM
     Dosage: GENERIC
     Route: 065
  45. ACETAMINOPHEN. [Concomitant]
     Active Substance: ACETAMINOPHEN
  46. LORATADINE. [Concomitant]
     Active Substance: LORATADINE
  47. LEVOTHYROXINE. [Concomitant]
     Active Substance: LEVOTHYROXINE
  48. POLYETHYLENE GLYCOL [Concomitant]
     Active Substance: POLYETHYLENE GLYCOLS
  49. PREDNISONE. [Concomitant]
     Active Substance: PREDNISONE
  50. HYDROCODONE BITARTRATE. [Concomitant]
     Active Substance: HYDROCODONE BITARTRATE
  51. CYCLOBENZAPRINE. [Concomitant]
     Active Substance: CYCLOBENZAPRINE
  52. GLIMEPIRIDE. [Concomitant]
     Active Substance: GLIMEPIRIDE
  53. ALPRAZOLAM. [Concomitant]
     Active Substance: ALPRAZOLAM

REACTIONS (5)
  - Chronic kidney disease [Unknown]
  - Rebound acid hypersecretion [Unknown]
  - Acute kidney injury [Unknown]
  - Renal injury [Unknown]
  - Renal failure [Unknown]
